FAERS Safety Report 6676040-9 (Version None)
Quarter: 2010Q2

REPORT INFORMATION
  Report Type: 
  Country: None (occurrence: None)
  Receive Date: 20100412
  Receipt Date: 20100329
  Transmission Date: 20101027
  Serious: Yes (Other)
  Sender: FDA-Public Use
  Company Number: FR-RANBAXY-2010RR-32335

PATIENT
  Age: 38 Year
  Sex: Male

DRUGS (1)
  1. MINOCYCLINE [Suspect]
     Indication: CEREBRAL TOXOPLASMOSIS
     Dosage: 200 MG, UNK
     Dates: start: 19970601, end: 20000501

REACTIONS (1)
  - BONE DISORDER [None]
